FAERS Safety Report 18820500 (Version 1)
Quarter: 2021Q1

REPORT INFORMATION
  Report Type: Spontaneous
  Country: BE (occurrence: BE)
  Receive Date: 20210202
  Receipt Date: 20210202
  Transmission Date: 20210419
  Serious: Yes (Other)
  Sender: FDA-Public Use
  Company Number: BE-ACCORD-215296

PATIENT
  Sex: Female
  Weight: 55 kg

DRUGS (15)
  1. OXYNORM [Concomitant]
     Active Substance: OXYCODONE HYDROCHLORIDE
     Indication: PAIN
     Dosage: INSTANT ORODISP TABLET 10MG AS NEEDED (PAIN) MAXIMUM 6 X 1 TABLET ORALLY
     Route: 048
     Dates: start: 20201030
  2. FOLAVIT [Concomitant]
     Active Substance: FOLIC ACID
     Dosage: TAB 4MG 1 TABLET AT 8 AM
     Route: 048
     Dates: start: 20201030
  3. TEMESTA [Concomitant]
     Dosage: EXPIDET TAB 1MG 1 TABLET AT 8 PM
     Route: 048
     Dates: start: 20201109
  4. PANTOPRAZOLE [Concomitant]
     Active Substance: PANTOPRAZOLE
     Dosage: TAB 40MG (SOBER) 1 TABLET AT 7AM ORALLY
     Route: 048
     Dates: start: 20201112
  5. CARBOPLATIN ACCORD [Suspect]
     Active Substance: CARBOPLATIN
     Indication: OVARIAN CANCER
     Dosage: STRENGTH:600MG/60ML
     Route: 042
     Dates: start: 20201103, end: 20201231
  6. EUCERIN PH?5 [Concomitant]
     Dosage: 1 DOSE AT 8 AM + 1 DOSE AT 8 PM
     Route: 003
     Dates: start: 20201029
  7. CETIRIZINE [Concomitant]
     Active Substance: CETIRIZINE HYDROCHLORIDE
     Dosage: TAB 10MG AS NEEDED (FOR RASH/ITCH) MAXIMUM 3 X 1 TABLET
     Route: 048
     Dates: start: 20201022
  8. ASAFLOW [Concomitant]
     Active Substance: ASPIRIN
     Dosage: TAB 80MG 1 TABLET AT 8 AM ORALLY
     Route: 048
     Dates: start: 20201029
  9. BUSCOPAN [Concomitant]
     Active Substance: BUTYLSCOPOLAMINE BROMIDE
     Indication: ABDOMINAL PAIN
     Dosage: TAB 10MG AS NEEDED (ABDOMINAL PAIN) MAXIMUM 4 X 1 DRAGEE
     Route: 048
     Dates: start: 20201112
  10. MEDROL [Concomitant]
     Active Substance: METHYLPREDNISOLONE
     Dosage: 32MG 1 TABLET AT 8AM
     Route: 048
     Dates: start: 20201112
  11. MATRIFEN TTS [Concomitant]
     Dosage: 50MCG/U 1 PIECE EVERY 3 DAYS
     Route: 003
     Dates: start: 20201109
  12. LITICAN [Concomitant]
     Active Substance: ALIZAPRIDE HYDROCHLORIDE
     Dosage: TAB 50MG 1 TABLET AT 8AM + 1 TABLET AT 12PM + 1 TABLET AT 4PM + 1 TABLET AT 8PM
  13. PACLITAXEL. [Concomitant]
     Active Substance: PACLITAXEL
     Indication: OVARIAN CANCER
     Dosage: 139.5MG WEEKLY
     Route: 042
     Dates: start: 20201103
  14. MOMETASONE [Concomitant]
     Active Substance: MOMETASONE
     Dosage: 50MCG/DOS 140DOS 1 VIAL AT 8 AM + 1 VIAL AT 12 PM + 1 VIAL AT 5 PM
  15. D?CURE [Concomitant]
     Active Substance: CHOLECALCIFEROL
     Dosage: AMP OR 1 AMPOULE EVERY 1 WEEK
     Route: 048
     Dates: start: 20201005

REACTIONS (3)
  - Dyspnoea [Recovered/Resolved]
  - Erythema [Recovered/Resolved]
  - Wheezing [Recovered/Resolved]

NARRATIVE: CASE EVENT DATE: 20201231
